FAERS Safety Report 6360949-X (Version None)
Quarter: 2009Q3

REPORT INFORMATION
  Report Type: 
  Country: None (occurrence: None)
  Receive Date: 20090918
  Receipt Date: 20090914
  Transmission Date: 20100115
  Serious: Yes (Hospitalization)
  Sender: FDA-Public Use
  Company Number: US-BRISTOL-MYERS SQUIBB COMPANY-14772255

PATIENT
  Age: 66 Year
  Sex: Male
  Weight: 77 kg

DRUGS (5)
  1. DASATINIB [Suspect]
     Indication: NON-SMALL CELL LUNG CANCER
     Route: 048
     Dates: start: 20090825, end: 20090903
  2. TARKA [Concomitant]
     Dosage: 1 DF = 2/180 MG
  3. HYDROCHLOROTHIAZIDE [Concomitant]
  4. FLOVENT [Concomitant]
     Dosage: 3 PUFFS BID
     Route: 055
  5. COMBIVENT [Concomitant]
     Dosage: 2 DF = 2 PUFFS
     Route: 055

REACTIONS (2)
  - DEHYDRATION [None]
  - PNEUMONIA [None]
